FAERS Safety Report 5660825-1 (Version None)
Quarter: 2008Q1

REPORT INFORMATION
  Report Type: 
  Country: None (occurrence: None)
  Receive Date: 20080311
  Receipt Date: 20080304
  Transmission Date: 20080703
  Serious: Yes (Hospitalization, Other)
  Sender: FDA-Public Use
  Company Number: BR-ASTRAZENECA-2008UW04555

PATIENT
  Age: 61 Year
  Sex: Female
  Weight: 52 kg

DRUGS (2)
  1. OMEPRAZOLE [Suspect]
     Indication: GASTROOESOPHAGEAL REFLUX DISEASE
     Route: 048
     Dates: start: 19980101, end: 20080101
  2. NEXIUM [Suspect]
     Indication: GASTROOESOPHAGEAL REFLUX DISEASE
     Route: 048
     Dates: start: 20080223

REACTIONS (5)
  - ALOPECIA [None]
  - BLOOD PRESSURE INCREASED [None]
  - DRY MOUTH [None]
  - NAUSEA [None]
  - OSTEOPOROSIS [None]
